FAERS Safety Report 10155860 (Version 1)
Quarter: 2014Q2

REPORT INFORMATION
  Report Type: Report from Study
  Country: US (occurrence: US)
  Receive Date: 20140506
  Receipt Date: 20140506
  Transmission Date: 20141212
  Serious: Yes (Other)
  Sender: FDA-Public Use
  Company Number: PHEH2014US008808

PATIENT
  Sex: Female
  Weight: 65.76 kg

DRUGS (11)
  1. TASIGNA [Suspect]
     Indication: CHRONIC MYELOID LEUKAEMIA
     Dosage: 200 MG, BID
     Route: 048
     Dates: start: 201401
  2. ALENDRONATE SODIUM [Concomitant]
  3. BIOTIN FORTE [Concomitant]
  4. CALCIUM CARBONATE [Concomitant]
  5. ECOTRIN [Concomitant]
  6. MULTIVITAMIN                       /00097801/ [Concomitant]
  7. TYLENOL [Concomitant]
  8. CELEBREX [Concomitant]
  9. DICLOFENAC [Concomitant]
  10. OMEPRAZOLE [Concomitant]
  11. LEVOCETIRIZIN [Concomitant]

REACTIONS (1)
  - Urinary tract infection [Unknown]
